FAERS Safety Report 23247586 (Version 2)
Quarter: 2024Q1

REPORT INFORMATION
  Report Type: Spontaneous
  Country: DE (occurrence: DE)
  Receive Date: 20231130
  Receipt Date: 20240108
  Transmission Date: 20240409
  Serious: Yes (Other)
  Sender: FDA-Public Use
  Company Number: DE-BAYER-2023A168305

PATIENT
  Age: 76 Year
  Sex: Male

DRUGS (2)
  1. KERENDIA [Suspect]
     Active Substance: FINERENONE
     Dosage: 20 MG, UNK
  2. KERENDIA [Suspect]
     Active Substance: FINERENONE
     Dosage: 10 MG

REACTIONS (3)
  - Parkinson^s disease [Recovered/Resolved]
  - Tremor [Recovered/Resolved]
  - Drug interaction [None]

NARRATIVE: CASE EVENT DATE: 20231121
